FAERS Safety Report 4869118-3 (Version None)
Quarter: 2005Q4

REPORT INFORMATION
  Report Type: 
  Country: None (occurrence: None)
  Receive Date: 20051230
  Receipt Date: 20051221
  Transmission Date: 20060501
  Serious: Yes (Other)
  Sender: FDA-Public Use
  Company Number: US-JNJFOC-20051105949

PATIENT
  Age: 9 Year
  Sex: Female

DRUGS (8)
  1. REMICADE [Suspect]
     Route: 042
  2. REMICADE [Suspect]
     Dosage: WEEK 6
     Route: 042
  3. REMICADE [Suspect]
     Dosage: WEEK 2
     Route: 042
  4. REMICADE [Suspect]
     Dosage: WEEK 0
     Route: 042
  5. REMICADE [Suspect]
     Route: 042
  6. 6-MP [Concomitant]
  7. ASACOL [Concomitant]
  8. PREDNISONE 50MG TAB [Concomitant]

REACTIONS (2)
  - INFUSION RELATED REACTION [None]
  - NEPHROBLASTOMA [None]
